FAERS Safety Report 9214263 (Version 1)
Quarter: 2013Q2

REPORT INFORMATION
  Report Type: Spontaneous
  Country: GB (occurrence: GB)
  Receive Date: 20130405
  Receipt Date: 20130405
  Transmission Date: 20140414
  Serious: Yes (Hospitalization, Disabling)
  Sender: FDA-Public Use
  Company Number: GB-PFIZER INC-GBWYE430126FEB06

PATIENT
  Age: 27 Year
  Sex: Female

DRUGS (4)
  1. IBUPROFEN [Suspect]
     Indication: MIGRAINE
     Dosage: MAX 6 TABLETS
     Route: 048
     Dates: end: 20060208
  2. AMITRIPTYLINE [Concomitant]
     Dosage: 50 MG, 1X/DAY
     Route: 048
  3. BETAHISTINE [Concomitant]
     Dosage: 16 MG, 3X/DAY
     Route: 048
  4. CYCLIZINE [Concomitant]
     Dosage: 50 MG, 3X/DAY
     Route: 048

REACTIONS (9)
  - Haematemesis [Not Recovered/Not Resolved]
  - Abdominal pain upper [Not Recovered/Not Resolved]
  - Constipation [Not Recovered/Not Resolved]
  - Vomiting [Not Recovered/Not Resolved]
  - Rectal haemorrhage [Not Recovered/Not Resolved]
  - Weight decreased [Not Recovered/Not Resolved]
  - Dizziness [Not Recovered/Not Resolved]
  - Decreased appetite [Not Recovered/Not Resolved]
  - Abasia [Not Recovered/Not Resolved]
